FAERS Safety Report 17251238 (Version 2)
Quarter: 2020Q1

REPORT INFORMATION
  Report Type: Report from Study
  Country: None (occurrence: US)
  Receive Date: 20200109
  Receipt Date: 20200302
  Transmission Date: 20200409
  Serious: Yes (Hospitalization)
  Sender: FDA-Public Use
  Company Number: US-ABBVIE-20K-163-3223400-00

PATIENT
  Sex: Female
  Weight: 81.72 kg

DRUGS (4)
  1. HUMIRA [Suspect]
     Active Substance: ADALIMUMAB
     Indication: HIDRADENITIS
     Dosage: CITRATE FREE
     Route: 058
     Dates: start: 20190721, end: 20191024
  2. HUMIRA [Suspect]
     Active Substance: ADALIMUMAB
     Dosage: CITRATE FREE
     Route: 058
     Dates: start: 20191103, end: 201911
  3. HUMIRA [Suspect]
     Active Substance: ADALIMUMAB
     Dosage: CITRATE FREE
     Route: 058
  4. HEMAX [Concomitant]
     Indication: INSOMNIA

REACTIONS (6)
  - Blood disorder [Unknown]
  - Immunosuppression [Unknown]
  - Biliary colic [Not Recovered/Not Resolved]
  - Large intestine infection [Unknown]
  - Injection site pain [Unknown]
  - Injection site indentation [Unknown]

NARRATIVE: CASE EVENT DATE: 2019
